FAERS Safety Report 14607507 (Version 2)
Quarter: 2018Q2

REPORT INFORMATION
  Report Type: Spontaneous
  Country: DE (occurrence: DE)
  Receive Date: 20180307
  Receipt Date: 20180506
  Transmission Date: 20180711
  Serious: Yes (Other)
  Sender: FDA-Public Use
  Company Number: DE-TEVA-2018-DE-863534

PATIENT
  Sex: Male

DRUGS (5)
  1. OLANZAPIN [Suspect]
     Active Substance: OLANZAPINE
     Dosage: 5 MILLIGRAM DAILY; DOSAGE FORM: UNSPECIFIED
     Route: 065
  2. OLANZAPIN [Suspect]
     Active Substance: OLANZAPINE
     Dosage: DOSAGE FORM: UNSPECIFIED
     Route: 065
  3. TIAPRIDE [Suspect]
     Active Substance: TIAPRIDE
     Indication: HYPERKINESIA
     Dosage: 300 MILLIGRAM DAILY; DOSAGE FORM: UNSPECIFIED
     Route: 065
     Dates: start: 20151201, end: 20171122
  4. XEPLION [Suspect]
     Active Substance: PALIPERIDONE PALMITATE
     Indication: PSYCHOTIC DISORDER
     Route: 030
     Dates: start: 20151201, end: 20171116
  5. OLANZAPIN [Suspect]
     Active Substance: OLANZAPINE
     Indication: PSYCHOTIC DISORDER
     Dosage: 10 MILLIGRAM DAILY;
     Route: 065
     Dates: start: 20151201

REACTIONS (2)
  - Thrombocytopenia [Unknown]
  - Basophil count decreased [Unknown]
